FAERS Safety Report 6073087-0 (Version None)
Quarter: 2009Q1

REPORT INFORMATION
  Report Type: 
  Country: None (occurrence: None)
  Receive Date: 20090205
  Receipt Date: 20081030
  Transmission Date: 20090719
  Serious: Yes (Hospitalization)
  Sender: FDA-Public Use
  Company Number: US025377

PATIENT
  Age: 61 Year
  Sex: Male
  Weight: 90 kg

DRUGS (4)
  1. RIBOMUSTIN [Suspect]
     Indication: B-CELL SMALL LYMPHOCYTIC LYMPHOMA
     Dosage: 150 MG UID/QD INTRAVENOUS
     Route: 042
     Dates: start: 20080828, end: 20080829
  2. CLARITROMYCINE [Concomitant]
  3. VALACYCLOVIR HCL [Concomitant]
  4. CIPROXEN [Concomitant]

REACTIONS (3)
  - DISEASE PROGRESSION [None]
  - OEDEMA PERIPHERAL [None]
  - PULMONARY EMBOLISM [None]
